FAERS Safety Report 12155383 (Version 1)
Quarter: 2016Q1

REPORT INFORMATION
  Report Type: Spontaneous
  Country: HU (occurrence: HU)
  Receive Date: 20160307
  Receipt Date: 20160307
  Transmission Date: 20160526
  Serious: Yes (Death, Other)
  Sender: FDA-Public Use
  Company Number: HU-TEVA-641378ACC

PATIENT
  Age: 22 Year
  Sex: Female

DRUGS (4)
  1. RITUXIMAB [Suspect]
     Active Substance: RITUXIMAB
     Indication: HODGKIN^S DISEASE
     Dosage: ON THE FIRST DAY OF EACH 28-DAY CYCLE
     Route: 065
     Dates: start: 201003
  2. BENDAMUSTINE HYDROCHLORIDE [Suspect]
     Active Substance: BENDAMUSTINE HYDROCHLORIDE
     Route: 042
     Dates: start: 201102
  3. RITUXIMAB [Suspect]
     Active Substance: RITUXIMAB
     Route: 065
     Dates: start: 201102
  4. BENDAMUSTINE HYDROCHLORIDE [Suspect]
     Active Substance: BENDAMUSTINE HYDROCHLORIDE
     Indication: HODGKIN^S DISEASE
     Dosage: ON THE DAY 1 AND 2 OF EACH 28-DAY CYCLE
     Route: 042
     Dates: start: 201003

REACTIONS (4)
  - Hodgkin^s disease [Unknown]
  - Death [Fatal]
  - Hodgkin^s disease stage IV [Unknown]
  - Off label use [Unknown]

NARRATIVE: CASE EVENT DATE: 201102
